FAERS Safety Report 4567827-7 (Version None)
Quarter: 2005Q1

REPORT INFORMATION
  Report Type: 
  Country: None (occurrence: None)
  Receive Date: 20050202
  Receipt Date: 20041018
  Transmission Date: 20050727
  Serious: No
  Sender: FDA-Public Use
  Company Number: US-GLAXOSMITHKLINE-A0530239A

PATIENT
  Age: 85 Year
  Sex: Female

DRUGS (8)
  1. AVANDAMET [Suspect]
     Dosage: 4 PER DAY
     Route: 048
     Dates: start: 20041001, end: 20041001
  2. METFORMIN HCL [Concomitant]
  3. ASPIRIN [Concomitant]
  4. GLYBURIDE [Concomitant]
  5. ZESTRIL [Concomitant]
  6. LORAZEPAM [Concomitant]
  7. NIFEDIPINE [Concomitant]
  8. LASIX [Concomitant]

REACTIONS (1)
  - DIZZINESS [None]
